FAERS Safety Report 6200846-3 (Version None)
Quarter: 2009Q2

REPORT INFORMATION
  Report Type: 
  Country: None (occurrence: None)
  Receive Date: 20090522
  Receipt Date: 20081006
  Transmission Date: 20091009
  Serious: No
  Sender: FDA-Public Use
  Company Number: US-ALEXION-A200800247

PATIENT
  Sex: Male
  Weight: 85.261 kg

DRUGS (3)
  1. SOLIRIS [Suspect]
     Dosage: 600 MG, QW
     Route: 042
     Dates: start: 20080808, end: 20080827
  2. SOLIRIS [Suspect]
     Dosage: 900 MG, Q2W
     Route: 042
     Dates: start: 20080903, end: 20081001
  3. PREVACID [Concomitant]
     Indication: ULCER
     Dosage: UNK, QD
     Route: 048

REACTIONS (2)
  - DRUG INEFFECTIVE [None]
  - HAEMOGLOBIN DECREASED [None]
